FAERS Safety Report 4585092-1 (Version None)
Quarter: 2005Q1

REPORT INFORMATION
  Report Type: 
  Country: None (occurrence: None)
  Receive Date: 20050217
  Receipt Date: 20041227
  Transmission Date: 20050727
  Serious: No
  Sender: FDA-Public Use
  Company Number: US-GLAXOSMITHKLINE-A0538685A

PATIENT
  Sex: Female

DRUGS (5)
  1. WELLBUTRIN [Suspect]
     Indication: PREMENSTRUAL SYNDROME
     Dosage: 150MG TWICE PER DAY
     Route: 048
  2. NEXIUM [Concomitant]
  3. MAGNESIUM [Concomitant]
  4. CALCIUM D [Concomitant]
     Dosage: 1200MG PER DAY
  5. NASAL SPRAY [Concomitant]
     Route: 045

REACTIONS (2)
  - DYSPEPSIA [None]
  - NASOPHARYNGEAL DISORDER [None]
